FAERS Safety Report 9894539 (Version 1)
Quarter: 2014Q1

REPORT INFORMATION
  Report Type: Report from Study
  Country: MX (occurrence: MX)
  Receive Date: 20140213
  Receipt Date: 20140213
  Transmission Date: 20141002
  Serious: Yes (Death)
  Sender: FDA-Public Use
  Company Number: PHHY2014MX017908

PATIENT
  Sex: Female

DRUGS (1)
  1. ACLASTA [Suspect]
     Dosage: UNK UKN, UNK (5 MG/100 ML)
     Route: 042

REACTIONS (3)
  - Procedural complication [Fatal]
  - Gallbladder disorder [Fatal]
  - Liver disorder [Fatal]
